FAERS Safety Report 9629600 (Version 2)
Quarter: 2014Q1

REPORT INFORMATION
  Report Type: Spontaneous
  Country: US (occurrence: US)
  Receive Date: 20131017
  Receipt Date: 20140224
  Transmission Date: 20141002
  Serious: Yes (Hospitalization, Other)
  Sender: FDA-Public Use
  Company Number: US-MALLINCKRODT-T201304595

PATIENT
  Age: 49 Year
  Sex: Female

DRUGS (1)
  1. GABLOFEN [Suspect]
     Indication: MUSCLE SPASTICITY
     Route: 037

REACTIONS (7)
  - Wound infection [Unknown]
  - Procedural complication [Unknown]
  - Wound dehiscence [Unknown]
  - Impaired healing [Unknown]
  - Urinary tract infection [Unknown]
  - Device connection issue [Unknown]
  - Muscle spasticity [Unknown]
